FAERS Safety Report 8933871 (Version 1)
Quarter: 2012Q4

REPORT INFORMATION
  Report Type: 
  Country: SG (occurrence: SG)
  Receive Date: 20121129
  Receipt Date: 20121129
  Transmission Date: 20130627
  Serious: Yes (Other)
  Sender: FDA-Public Use
  Company Number: SG-SANOFI-AVENTIS-2012SA086394

PATIENT
  Age: 78 Year
  Sex: Female

DRUGS (1)
  1. TELFAST [Suspect]
     Indication: DRUG USE FOR UNKNOWN INDICATION
     Route: 065

REACTIONS (2)
  - Face oedema [Unknown]
  - Eye swelling [Unknown]
